FAERS Safety Report 8785410 (Version 1)
Quarter: 2012Q4

REPORT INFORMATION
  Report Type: 
  Country: US (occurrence: US)
  Receive Date: 20120914
  Receipt Date: 20120914
  Transmission Date: 20130627
  Serious: Yes (Hospitalization)
  Sender: FDA-Public Use
  Company Number: US-ELI_LILLY_AND_COMPANY-US201209001840

PATIENT
  Age: 66 Year
  Sex: Female
  Weight: 52.61 kg

DRUGS (11)
  1. EFFIENT [Suspect]
     Indication: STENT PLACEMENT
     Dosage: 10 mg, qd
     Dates: start: 20120801
  2. ASA [Concomitant]
  3. FENOFIBRATE [Concomitant]
  4. LIPITOR [Concomitant]
  5. MEFORMIN [Concomitant]
  6. HYZAAR [Concomitant]
  7. METOPROLOL SUCCINATE [Concomitant]
  8. TRAMADOL [Concomitant]
  9. SINGULAIR [Concomitant]
  10. KCL [Concomitant]
  11. NEXIUM [Concomitant]

REACTIONS (1)
  - Chest pain [Unknown]
